FAERS Safety Report 23938386 (Version 1)
Quarter: 2024Q2

REPORT INFORMATION
  Report Type: Spontaneous
  Country: US (occurrence: US)
  Receive Date: 20240604
  Receipt Date: 20240604
  Transmission Date: 20240716
  Serious: No
  Sender: FDA-Public Use
  Company Number: US-PFIZER INC-202400185408

PATIENT
  Age: 65 Year
  Sex: Female

DRUGS (2)
  1. PAXLOVID [Suspect]
     Active Substance: NIRMATRELVIR\RITONAVIR
     Indication: COVID-19 treatment
     Dosage: UNK
     Dates: start: 20240531, end: 20240603
  2. NITROFURANTOIN [Concomitant]
     Active Substance: NITROFURANTOIN
     Dosage: UNK
     Dates: start: 20240530, end: 20240603

REACTIONS (4)
  - Dysgeusia [Unknown]
  - Tongue discomfort [Unknown]
  - Hypoaesthesia oral [Unknown]
  - Headache [Unknown]

NARRATIVE: CASE EVENT DATE: 20240531
